FAERS Safety Report 8566441-6 (Version None)
Quarter: 2012Q3

REPORT INFORMATION
  Report Type: 
  Country: None (occurrence: None)
  Receive Date: 20120803
  Receipt Date: 20111114
  Transmission Date: 20120928
  Serious: No
  Sender: FDA-Public Use
  Company Number: US-ABBOTT-11P-163-0874084-00

PATIENT
  Sex: Female
  Weight: 69.008 kg

DRUGS (2)
  1. NIASPAN [Suspect]
  2. NIASPAN [Suspect]
     Indication: PRODUCT USED FOR UNKNOWN INDICATION

REACTIONS (7)
  - BURNING SENSATION [None]
  - ERYTHEMA [None]
  - LIP SWELLING [None]
  - PRURITUS [None]
  - FLUSHING [None]
  - RASH [None]
  - AURICULAR SWELLING [None]
